FAERS Safety Report 10061650 (Version 1)
Quarter: 2014Q2

REPORT INFORMATION
  Report Type: Spontaneous
  Country: NZ (occurrence: None)
  Receive Date: 20140403
  Receipt Date: 20140403
  Transmission Date: 20141212
  Serious: Yes (Hospitalization)
  Sender: FDA-Public Use
  Company Number: NSR_01530_2014

PATIENT
  Age: 63 Year
  Sex: Female

DRUGS (8)
  1. ALLOPURINOL (ALLOPURINOL) [Suspect]
     Indication: GOUT
  2. AMIODARONE (AMIODARONE) [Suspect]
     Indication: PRODUCT USED FOR UNKNOWN INDICATION
  3. ASPIRIN [Concomitant]
  4. SPIRONOLACTONE [Concomitant]
  5. FUROSEMIDE [Concomitant]
  6. METOPROLOL [Concomitant]
  7. WARFARIN [Concomitant]
  8. POTASSIUM [Concomitant]

REACTIONS (9)
  - Drug reaction with eosinophilia and systemic symptoms [None]
  - Vasculitis cerebral [None]
  - Weight increased [None]
  - Alopecia [None]
  - Hyperthyroidism [None]
  - Cardiac failure [None]
  - Anaemia [None]
  - Oedema [None]
  - Periorbital oedema [None]
